FAERS Safety Report 16002041 (Version 1)
Quarter: 2019Q1

REPORT INFORMATION
  Report Type: Spontaneous
  Country: US (occurrence: US)
  Receive Date: 20190225
  Receipt Date: 20190225
  Transmission Date: 20190418
  Serious: Yes (Other)
  Sender: FDA-Public Use
  Company Number: US-PFIZER INC-2017202074

PATIENT
  Age: 62 Year
  Sex: Male
  Weight: 79.37 kg

DRUGS (3)
  1. CYMBALTA [Concomitant]
     Active Substance: DULOXETINE HYDROCHLORIDE
     Dosage: UNK
  2. LYRICA [Suspect]
     Active Substance: PREGABALIN
     Indication: NEURALGIA
     Dosage: 200 MG, 2X/DAY
  3. LYRICA [Suspect]
     Active Substance: PREGABALIN
     Indication: NEUROPATHY PERIPHERAL
     Dosage: 75 MG, 3X/DAY (THEN 1 CAPSULE IF NEEDED)

REACTIONS (7)
  - Therapeutic response unexpected [Unknown]
  - Neuralgia [Unknown]
  - Headache [Unknown]
  - Intentional product misuse [Not Recovered/Not Resolved]
  - Feeling abnormal [Not Recovered/Not Resolved]
  - Pre-existing condition improved [Unknown]
  - Trigeminal neuralgia [Unknown]

NARRATIVE: CASE EVENT DATE: 2011
